FAERS Safety Report 25301309 (Version 1)
Quarter: 2025Q2

REPORT INFORMATION
  Report Type: Spontaneous
  Country: US (occurrence: US)
  Receive Date: 20250512
  Receipt Date: 20250512
  Transmission Date: 20250717
  Serious: No
  Sender: UROGEN PHARMA
  Company Number: US-UROGEN PHARMA LTD.-2025-UGN-000042

PATIENT

DRUGS (1)
  1. JELMYTO [Suspect]
     Active Substance: MITOMYCIN
     Indication: Transitional cell cancer of the renal pelvis and ureter
     Dosage: 80 MILLIGRAM, ONCE A WEEK, (INSTILLATION)
     Dates: start: 20250312, end: 20250312

REACTIONS (3)
  - Fatigue [Unknown]
  - Asthenia [Unknown]
  - Haematuria [Unknown]

NARRATIVE: CASE EVENT DATE: 20250319
